FAERS Safety Report 8557629-9 (Version None)
Quarter: 2012Q3

REPORT INFORMATION
  Report Type: 
  Country: None (occurrence: None)
  Receive Date: 20120801
  Receipt Date: 20120723
  Transmission Date: 20120928
  Serious: Yes (Other)
  Sender: FDA-Public Use
  Company Number: US-ASTRAZENECA-2008UW24954

PATIENT
  Age: 47 Year
  Sex: Female

DRUGS (3)
  1. ARIMIDEX [Suspect]
     Indication: BREAST CANCER
     Route: 048
     Dates: start: 20081101
  2. LOVENOX [Concomitant]
  3. NEXIUM [Suspect]
     Route: 048

REACTIONS (7)
  - HOT FLUSH [None]
  - BREAST CANCER FEMALE [None]
  - GASTRIC ULCER [None]
  - STRESS [None]
  - WEIGHT INCREASED [None]
  - DECREASED APPETITE [None]
  - ARTHRALGIA [None]
